FAERS Safety Report 12137016 (Version 1)
Quarter: 2016Q1

REPORT INFORMATION
  Report Type: Spontaneous
  Country: US (occurrence: US)
  Receive Date: 20160302
  Receipt Date: 20160302
  Transmission Date: 20160526
  Serious: No
  Sender: FDA-Public Use
  Company Number: US-PERRIGO-15US009147

PATIENT
  Age: 80 Year
  Sex: Male
  Weight: 95.24 kg

DRUGS (17)
  1. LOPERAMIDE HYDROCHLORIDE 2 MG 960 [Suspect]
     Active Substance: LOPERAMIDE HYDROCHLORIDE
     Indication: DIARRHOEA
     Dosage: 4 MG, SINGLE
     Route: 048
     Dates: start: 201508, end: 201508
  2. FOLIC ACID. [Concomitant]
     Active Substance: FOLIC ACID
     Indication: SUPPLEMENTATION THERAPY
     Dosage: 1 MG, QD
     Route: 048
  3. ASPIRIN. [Concomitant]
     Active Substance: ASPIRIN
     Indication: PROPHYLAXIS
     Dosage: 325 MG, QD
     Route: 048
  4. QUININE [Concomitant]
     Active Substance: QUININE
     Indication: MUSCLE SPASMS
     Dosage: 325 MG, QD
     Route: 048
  5. SIMVASTATIN. [Concomitant]
     Active Substance: SIMVASTATIN
     Indication: PRODUCT USED FOR UNKNOWN INDICATION
     Dosage: 20 MG, QD
     Route: 048
  6. AZATHIOPRINE. [Concomitant]
     Active Substance: AZATHIOPRINE
     Indication: ARTHRITIS
     Dosage: 50 MG, TID
     Route: 048
  7. INSULIN [Concomitant]
     Active Substance: INSULIN NOS
     Indication: DIABETES MELLITUS
     Dosage: UNKNOWN, QHS
     Route: 058
     Dates: start: 2015
  8. LEVOTHYROXINE. [Concomitant]
     Active Substance: LEVOTHYROXINE
     Indication: PRODUCT USED FOR UNKNOWN INDICATION
     Dosage: 50 MG, QD
     Route: 048
  9. CALCIUM + VIT D [Concomitant]
     Active Substance: CALCIUM\VITAMIN D
     Indication: SUPPLEMENTATION THERAPY
     Dosage: 500 MG, BID
     Route: 048
  10. OXYBUTYNIN [Concomitant]
     Active Substance: OXYBUTYNIN
     Indication: PRODUCT USED FOR UNKNOWN INDICATION
     Dosage: 10 MG, QD
     Route: 048
  11. VIIBRYD [Concomitant]
     Active Substance: VILAZODONE HYDROCHLORIDE
     Indication: DEPRESSION
     Dosage: 40 MG, QD
     Route: 048
  12. CENTRUM                            /07499601/ [Concomitant]
     Indication: SUPPLEMENTATION THERAPY
     Dosage: 1 TABLET, QD
     Route: 048
  13. FISH LIVER OIL [Concomitant]
     Indication: SUPPLEMENTATION THERAPY
     Dosage: UNKNOWN, UNKNOWN
     Route: 048
  14. MAGNESIUM [Concomitant]
     Active Substance: MAGNESIUM
     Indication: SUPPLEMENTATION THERAPY
     Dosage: 500 MG, QD
     Route: 048
  15. BACLOFEN. [Concomitant]
     Active Substance: BACLOFEN
     Indication: PRODUCT USED FOR UNKNOWN INDICATION
     Dosage: 10 MG, QD
     Route: 048
  16. NEXIUM [Concomitant]
     Active Substance: ESOMEPRAZOLE MAGNESIUM
     Indication: GASTROOESOPHAGEAL REFLUX DISEASE
     Dosage: 40 MG, BID
     Route: 048
  17. ATENOLOL. [Concomitant]
     Active Substance: ATENOLOL
     Indication: PRODUCT USED FOR UNKNOWN INDICATION
     Dosage: 25 TO 50 MG, QD
     Route: 048

REACTIONS (1)
  - Drug ineffective [Unknown]

NARRATIVE: CASE EVENT DATE: 201508
